FAERS Safety Report 14851602 (Version 1)
Quarter: 2018Q2

REPORT INFORMATION
  Report Type: Spontaneous
  Country: US (occurrence: US)
  Receive Date: 20180507
  Receipt Date: 20180507
  Transmission Date: 20180711
  Serious: No
  Sender: FDA-Public Use
  Company Number: US-AUROBINDO-AUR-APL-2018-010271

PATIENT
  Age: 9 Year
  Sex: Male

DRUGS (1)
  1. SEVELAMER CARBONATE 800 MG TABLETS [Suspect]
     Active Substance: SEVELAMER CARBONATE
     Indication: BLOOD PHOSPHORUS INCREASED
     Dosage: 400 MILLIGRAM, 3 TIMES A DAY
     Route: 065
     Dates: start: 201712

REACTIONS (1)
  - Wrong technique in product usage process [Unknown]
